FAERS Safety Report 9507372 (Version 1)
Quarter: 2013Q3

REPORT INFORMATION
  Report Type: Spontaneous
  Country: US (occurrence: None)
  Receive Date: 20130904
  Receipt Date: 20130904
  Transmission Date: 20140515
  Serious: Yes (Other)
  Sender: FDA-Public Use
  Company Number: ADR-2013-01529

PATIENT
  Sex: Female

DRUGS (2)
  1. BACLOFEN [Suspect]
     Indication: TOURETTE^S DISORDER
  2. TETRABENAZINE [Suspect]
     Indication: TOURETTE^S DISORDER

REACTIONS (1)
  - Parkinsonism [None]
